FAERS Safety Report 9298971 (Version 1)
Quarter: 2013Q2

REPORT INFORMATION
  Report Type: Spontaneous
  Country: US (occurrence: US)
  Receive Date: 20130520
  Receipt Date: 20130520
  Transmission Date: 20140414
  Serious: No
  Sender: FDA-Public Use
  Company Number: US-SANOFI-AVENTIS-2013SA007846

PATIENT
  Sex: Female

DRUGS (3)
  1. APIDRA SOLOSTAR [Suspect]
     Dosage: DOSE:9 UNIT(S)
     Route: 058
     Dates: start: 201205
  2. SOLOSTAR [Suspect]
     Dates: start: 201205
  3. INSULIN DETEMIR [Concomitant]

REACTIONS (3)
  - Blood glucose abnormal [Unknown]
  - Drug ineffective [Unknown]
  - Malaise [Unknown]
